FAERS Safety Report 9046241 (Version 1)
Quarter: 2013Q1

REPORT INFORMATION
  Report Type: Spontaneous
  Country: US (occurrence: None)
  Receive Date: 20130128
  Receipt Date: 20130128
  Transmission Date: 20140127
  Serious: Yes (Other)
  Sender: FDA-Public Use
  Company Number: None

PATIENT
  Sex: Male

DRUGS (3)
  1. CIMZIA 400 MG UCB PHARMA [Suspect]
     Indication: CROHN^S DISEASE
     Dosage: 400 MG  EVERY 2 WEEKS  SUBCUTANEOUSLY?MAR  2011  (STARTED@CSP) - JAN 2013
     Route: 058
     Dates: start: 201103, end: 201301
  2. LEVAQUIN [Concomitant]
  3. PENTASA [Concomitant]

REACTIONS (1)
  - Hepatic cancer [None]
